FAERS Safety Report 16787247 (Version 1)
Quarter: 2019Q3

REPORT INFORMATION
  Report Type: Spontaneous
  Country: FR (occurrence: FR)
  Receive Date: 20190909
  Receipt Date: 20190909
  Transmission Date: 20191005
  Serious: Yes (Hospitalization, Other)
  Sender: FDA-Public Use
  Company Number: FR-BRISTOL-MYERS SQUIBB COMPANY-BMS-2019-085443

PATIENT
  Age: 58 Year
  Sex: Female

DRUGS (1)
  1. OPDIVO [Suspect]
     Active Substance: NIVOLUMAB
     Indication: LUNG CANCER METASTATIC
     Dosage: 240 MILLIGRAM PER 3 WEEKS
     Route: 042
     Dates: start: 20170405

REACTIONS (2)
  - Off label use [Unknown]
  - Polyarthritis [Recovered/Resolved with Sequelae]

NARRATIVE: CASE EVENT DATE: 201705
